FAERS Safety Report 9092641 (Version 2)
Quarter: 2013Q1

REPORT INFORMATION
  Report Type: Spontaneous
  Country: US (occurrence: US)
  Receive Date: 20130131
  Receipt Date: 20130305
  Transmission Date: 20140127
  Serious: Yes (Life-Threatening)
  Sender: FDA-Public Use
  Company Number: US-009507513-1301USA007094

PATIENT
  Age: 68 None
  Sex: Female
  Weight: 82.99 kg

DRUGS (2)
  1. LISINOPRIL [Suspect]
     Indication: HYPERTENSION
     Dosage: 10 MG, BID
     Route: 048
     Dates: start: 20120115, end: 20120309
  2. ATIVAN [Concomitant]

REACTIONS (9)
  - Lip swelling [Recovered/Resolved]
  - Swollen tongue [Recovered/Resolved]
  - Presyncope [Recovering/Resolving]
  - Heart rate increased [Recovered/Resolved]
  - Pain [Recovering/Resolving]
  - Chills [Recovering/Resolving]
  - Chest pain [Recovering/Resolving]
  - Pyrexia [Recovering/Resolving]
  - Adverse drug reaction [Unknown]
